FAERS Safety Report 8049065-9 (Version None)
Quarter: 2012Q1

REPORT INFORMATION
  Report Type: 
  Country: None (occurrence: None)
  Receive Date: 20120117
  Receipt Date: 20120113
  Transmission Date: 20120608
  Serious: Yes (Death)
  Sender: FDA-Public Use
  Company Number: US-BRACCO-007249

PATIENT
  Age: 58 Year
  Sex: Male
  Weight: 55 kg

DRUGS (11)
  1. DILAUDID [Concomitant]
  2. TOPROL-XL [Concomitant]
  3. GASTROGRAFIN [Suspect]
     Indication: SMALL INTESTINAL OBSTRUCTION
     Route: 050
     Dates: start: 20111206, end: 20111206
  4. ALDACTONE [Concomitant]
  5. INSULIN [Concomitant]
  6. METHADONE HCL [Concomitant]
  7. DECADRON [Concomitant]
  8. COREG [Concomitant]
  9. GASTROGRAFIN [Suspect]
     Indication: X-RAY WITH CONTRAST UPPER GASTROINTESTINAL TRACT
     Route: 050
     Dates: start: 20111206, end: 20111206
  10. ATIVAN [Concomitant]
  11. ARGATROBAN [Concomitant]
     Indication: DEEP VEIN THROMBOSIS
     Dosage: WAS SHUT OFF PRIOR TO RECEIVING CONTRAST ON 06-DEC-2011 BECAUSE OF SCHEDULED SURGERY ON 07-DEC-2011

REACTIONS (9)
  - RESPIRATORY DISTRESS [None]
  - BLOOD CALCIUM INCREASED [None]
  - BLOOD POTASSIUM INCREASED [None]
  - DIARRHOEA [None]
  - PULSELESS ELECTRICAL ACTIVITY [None]
  - TACHYCARDIA [None]
  - BLOOD SODIUM INCREASED [None]
  - BILE OUTPUT [None]
  - HYPOTENSION [None]
